FAERS Safety Report 20903889 (Version 1)
Quarter: 2022Q2

REPORT INFORMATION
  Report Type: Spontaneous
  Country: ES (occurrence: ES)
  Receive Date: 20220602
  Receipt Date: 20220602
  Transmission Date: 20220720
  Serious: No
  Sender: FDA-Public Use
  Company Number: ES-LUPIN PHARMACEUTICALS INC.-2022-07840

PATIENT
  Age: 43 Year
  Sex: Male
  Weight: 83 kg

DRUGS (18)
  1. METHYLPREDNISOLONE [Suspect]
     Active Substance: METHYLPREDNISOLONE
     Indication: COVID-19 pneumonia
     Dosage: 1 MILLIGRAM/KILOGRAM, QD
     Route: 065
     Dates: start: 2020
  2. AZITHROMYCIN [Suspect]
     Active Substance: AZITHROMYCIN
     Indication: COVID-19 pneumonia
     Dosage: 500 MG FOR 8 DAYS
     Route: 065
     Dates: start: 2020
  3. LOPINAVIR\RITONAVIR [Suspect]
     Active Substance: LOPINAVIR\RITONAVIR
     Indication: COVID-19 pneumonia
     Dosage: UNK
     Route: 065
     Dates: start: 2020
  4. CHLOROQUINE [Suspect]
     Active Substance: CHLOROQUINE
     Indication: COVID-19 pneumonia
     Dosage: 200 MG
     Route: 065
     Dates: start: 2020
  5. REMDESIVIR [Suspect]
     Active Substance: REMDESIVIR
     Indication: COVID-19 pneumonia
     Dosage: 100 MG
     Route: 065
     Dates: start: 2020
  6. TOCILIZUMAB [Suspect]
     Active Substance: TOCILIZUMAB
     Indication: COVID-19 pneumonia
     Dosage: 400 MG 2 DOSES
     Route: 065
     Dates: start: 2020
  7. ALTEPLASE [Concomitant]
     Active Substance: ALTEPLASE
     Indication: Pulmonary embolism
     Dosage: 100 MG 2-HOUR PERFUSION
     Route: 065
     Dates: start: 2020
  8. HEPARIN [Concomitant]
     Active Substance: HEPARIN SODIUM
     Indication: Pulmonary embolism
     Dosage: 1000 INTERNATIONAL UNIT PER HOURS
     Route: 065
     Dates: start: 2020, end: 2020
  9. ENOXAPARIN [Concomitant]
     Active Substance: ENOXAPARIN
     Indication: Fibrin D dimer increased
     Dosage: 40 MG, BID
     Route: 065
     Dates: start: 2020
  10. ENOXAPARIN [Concomitant]
     Active Substance: ENOXAPARIN
     Dosage: UNK DECREASED
     Route: 065
     Dates: start: 2020
  11. EPINEPHRINE [Concomitant]
     Active Substance: EPINEPHRINE
     Indication: Haemodynamic instability
     Dosage: 0.2 MICROGRAM/KILOGRAM PERFUSION
     Route: 065
     Dates: start: 2020
  12. EPINEPHRINE [Concomitant]
     Active Substance: EPINEPHRINE
     Dosage: UNK PERFUSION INITIAL DOSAGE NOT STATED
     Route: 065
     Dates: start: 2020
  13. NOREPINEPHRINE [Concomitant]
     Active Substance: NOREPINEPHRINE
     Indication: Haemodynamic instability
     Dosage: UNK PERFUSION
     Route: 065
     Dates: start: 2020
  14. NITRIC OXIDE [Concomitant]
     Active Substance: NITRIC OXIDE
     Indication: Hypoxia
     Dosage: UNK AT A CONCENTRATION OF 20 PARTS PER MILLION
     Route: 065
     Dates: start: 2020
  15. MILRINONE [Concomitant]
     Active Substance: MILRINONE
     Indication: Ventricular dysfunction
     Dosage: UNK
     Route: 065
     Dates: start: 2020
  16. MEROPENEM [Concomitant]
     Active Substance: MEROPENEM
     Indication: Enterococcal bacteraemia
     Dosage: UNK
     Route: 065
     Dates: start: 2020
  17. AMPICILLIN [Concomitant]
     Active Substance: AMPICILLIN
     Indication: Enterococcal bacteraemia
     Dosage: UNK
     Route: 065
     Dates: start: 2020
  18. ANIDULAFUNGIN [Concomitant]
     Active Substance: ANIDULAFUNGIN
     Indication: Candida infection
     Dosage: UNK
     Route: 065
     Dates: start: 2020

REACTIONS (1)
  - Off label use [Unknown]

NARRATIVE: CASE EVENT DATE: 20200101
